FAERS Safety Report 24719129 (Version 1)
Quarter: 2024Q4

REPORT INFORMATION
  Report Type: Spontaneous
  Country: FR (occurrence: FR)
  Receive Date: 20241210
  Receipt Date: 20241210
  Transmission Date: 20250115
  Serious: Yes (Other)
  Sender: UCB
  Company Number: None

PATIENT
  Age: 8 Year
  Sex: Female
  Weight: 19 kg

DRUGS (1)
  1. KEPPRA [Suspect]
     Active Substance: LEVETIRACETAM
     Indication: Incorrect dose administered
     Dosage: 5.8 MILLILITER (5 ML IN ADDITION TO THE NORMAL 0.8 ML)
     Route: 048
     Dates: start: 20241014, end: 20241014

REACTIONS (4)
  - Agitation [Recovered/Resolved]
  - Nervous system disorder [Recovered/Resolved]
  - Partial seizures [Recovered/Resolved]
  - Incorrect dose administered [Unknown]

NARRATIVE: CASE EVENT DATE: 20241014
